FAERS Safety Report 15944874 (Version 3)
Quarter: 2020Q2

REPORT INFORMATION
  Report Type: Report from Study
  Country: US (occurrence: US)
  Receive Date: 20190211
  Receipt Date: 20200612
  Transmission Date: 20200713
  Serious: No
  Sender: FDA-Public Use
  Company Number: US-ACADIA PHARMACEUTICALS INC.-ACA-2018-011289

PATIENT
  Age: 56 Year
  Sex: Male

DRUGS (2)
  1. NUPLAZID [Suspect]
     Active Substance: PIMAVANSERIN TARTRATE
     Dosage: 34 MG, QD
     Route: 048
     Dates: start: 201812
  2. NUPLAZID [Suspect]
     Active Substance: PIMAVANSERIN TARTRATE
     Indication: PARKINSON^S DISEASE
     Dosage: 34 MG, QD
     Route: 048
     Dates: start: 2018, end: 201812

REACTIONS (6)
  - Sleep disorder [Unknown]
  - Hallucination, visual [Unknown]
  - Skin exfoliation [Unknown]
  - Hallucination [Unknown]
  - Product dose omission [Unknown]
  - Hallucination [Unknown]

NARRATIVE: CASE EVENT DATE: 201812
